FAERS Safety Report 5048612-9 (Version None)
Quarter: 2006Q2

REPORT INFORMATION
  Report Type: 
  Country: None (occurrence: None)
  Receive Date: 20060628
  Receipt Date: 20060619
  Transmission Date: 20061013
  Serious: Yes (Other)
  Sender: FDA-Public Use
  Company Number: HQ3692625JUL2001

PATIENT
  Age: 30 Month
  Sex: Male

DRUGS (6)
  1. REFACTO [Suspect]
     Indication: ANTI FACTOR VIII ANTIBODY POSITIVE
     Dosage: SEE IMAGE
     Route: 042
     Dates: start: 20000510, end: 20000712
  2. REFACTO [Suspect]
     Indication: FACTOR VIII DEFICIENCY
     Dosage: SEE IMAGE
     Route: 042
     Dates: start: 20000510, end: 20000712
  3. REFACTO [Suspect]
     Indication: ANTI FACTOR VIII ANTIBODY POSITIVE
     Dosage: SEE IMAGE
     Route: 042
     Dates: start: 20010101
  4. REFACTO [Suspect]
     Indication: FACTOR VIII DEFICIENCY
     Dosage: SEE IMAGE
     Route: 042
     Dates: start: 20010101
  5. REFACTO [Suspect]
     Indication: ANTI FACTOR VIII ANTIBODY POSITIVE
     Dosage: SEE IMAGE
     Route: 042
     Dates: start: 20020101
  6. REFACTO [Suspect]
     Indication: FACTOR VIII DEFICIENCY
     Dosage: SEE IMAGE
     Route: 042
     Dates: start: 20020101

REACTIONS (1)
  - DRUG SPECIFIC ANTIBODY PRESENT [None]
